FAERS Safety Report 19905338 (Version 2)
Quarter: 2021Q4

REPORT INFORMATION
  Report Type: Spontaneous
  Country: CN (occurrence: CN)
  Receive Date: 20211001
  Receipt Date: 20211027
  Transmission Date: 20220303
  Serious: Yes (Hospitalization, Other)
  Sender: FDA-Public Use
  Company Number: 2021A722020

PATIENT
  Age: 558 Month
  Sex: Male
  Weight: 70 kg

DRUGS (3)
  1. IMFINZI [Suspect]
     Active Substance: DURVALUMAB
     Indication: Non-small cell lung cancer stage III
     Dosage: 1000MG/CYCLE
     Route: 042
     Dates: start: 20201113
  2. IMFINZI [Suspect]
     Active Substance: DURVALUMAB
     Indication: Non-small cell lung cancer stage III
     Dosage: 1000MG/CYCLE
     Route: 042
     Dates: start: 20210802
  3. PEMETREXED/CARBOPLATIN [Concomitant]
     Indication: Lung adenocarcinoma

REACTIONS (6)
  - Arthralgia [Recovering/Resolving]
  - Emphysema [Recovering/Resolving]
  - Immunodeficiency [Unknown]
  - Malignant neoplasm progression [Unknown]
  - Erythema [Recovered/Resolved]
  - Cough [Recovering/Resolving]

NARRATIVE: CASE EVENT DATE: 20210401
